FAERS Safety Report 8198398-4 (Version None)
Quarter: 2012Q1

REPORT INFORMATION
  Report Type: 
  Country: None (occurrence: None)
  Receive Date: 20120309
  Receipt Date: 20111129
  Transmission Date: 20120608
  Serious: No
  Sender: FDA-Public Use
  Company Number: US-AMGEN-USASP2011059445

PATIENT
  Sex: Female

DRUGS (7)
  1. MAGNESIUM [Concomitant]
     Dosage: 1 MG, QD
  2. LEVOTHYROXINE SODIUM [Concomitant]
     Dosage: 1 MUG, QD
  3. IBUPROFEN [Concomitant]
     Dosage: 600 MG, UNK
  4. PAXIL [Concomitant]
     Dosage: 1 MG, QD
  5. PROLIA [Suspect]
     Indication: OSTEOPOROSIS POSTMENOPAUSAL
  6. PROLIA [Suspect]
     Indication: OSTEOPENIA
     Dosage: 60 MG, Q6MO
     Dates: start: 20110907
  7. VITAMIN D [Concomitant]
     Dosage: 1 IU, QD

REACTIONS (8)
  - JOINT SWELLING [None]
  - ACTIVITIES OF DAILY LIVING IMPAIRED [None]
  - ARTHRALGIA [None]
  - SERUM SICKNESS [None]
  - DISABILITY [None]
  - RASH MACULO-PAPULAR [None]
  - HOT FLUSH [None]
  - PAIN IN EXTREMITY [None]
